FAERS Safety Report 7477333-8 (Version None)
Quarter: 2011Q2

REPORT INFORMATION
  Report Type: 
  Country: None (occurrence: None)
  Receive Date: 20110513
  Receipt Date: 20110503
  Transmission Date: 20111010
  Serious: No
  Sender: FDA-Public Use
  Company Number: US-BIOGENIDEC-2011BI016281

PATIENT
  Age: 38 Year
  Sex: Female

DRUGS (1)
  1. TYSABRI [Suspect]
     Indication: MULTIPLE SCLEROSIS
     Route: 042
     Dates: start: 20100914

REACTIONS (6)
  - DIZZINESS [None]
  - FATIGUE [None]
  - MALAISE [None]
  - DYSPNOEA [None]
  - NAUSEA [None]
  - BLOOD GLUCOSE INCREASED [None]
